FAERS Safety Report 7134521-8 (Version None)
Quarter: 2010Q4

REPORT INFORMATION
  Report Type: 
  Country: None (occurrence: None)
  Receive Date: 20101130
  Receipt Date: 20101130
  Transmission Date: 20110411
  Serious: Yes (Hospitalization, Other)
  Sender: FDA-Public Use
  Company Number: None

PATIENT
  Age: 11 Year
  Sex: Male
  Weight: 45.3597 kg

DRUGS (2)
  1. STRATTERA [Suspect]
     Indication: ATTENTION DEFICIT/HYPERACTIVITY DISORDER
     Dosage: 10 MG ONCE A DAY PO
     Route: 048
     Dates: start: 20101112, end: 20101115
  2. STRATTERA [Suspect]
     Indication: AUTISM
     Dosage: 10 MG ONCE A DAY PO
     Route: 048
     Dates: start: 20101112, end: 20101115

REACTIONS (1)
  - LOSS OF CONSCIOUSNESS [None]
